FAERS Safety Report 11394197 (Version 2)
Quarter: 2015Q3

REPORT INFORMATION
  Report Type: Spontaneous
  Country: AR (occurrence: None)
  Receive Date: 20150817
  Receipt Date: 20150828
  Transmission Date: 20151125
  Serious: Yes (Other)
  Sender: FDA-Public Use
  Company Number: ADR-2015-01550

PATIENT
  Sex: Male

DRUGS (5)
  1. CLONAZEPAM AND BUDESONIDE/FORMOTEROL FUMARATE DEHYDRATE [Concomitant]
  2. BUDESONIDE/FORMOTEROL FUMARATE  DEHYDRATE [Concomitant]
  3. DIAZEPAM. [Suspect]
     Active Substance: DIAZEPAM
     Dates: start: 201403, end: 201404
  4. LIORESAL [Suspect]
     Active Substance: BACLOFEN
     Indication: MUSCLE SPASTICITY
     Dosage: 10 MG, 6QD?SEE B5
     Dates: start: 2007
  5. LEVETIRACETAM. [Concomitant]
     Active Substance: LEVETIRACETAM

REACTIONS (3)
  - Generalised tonic-clonic seizure [None]
  - Therapy cessation [None]
  - Dysphagia [None]
